FAERS Safety Report 10264808 (Version 1)
Quarter: 2014Q2

REPORT INFORMATION
  Report Type: Spontaneous
  Country: US (occurrence: US)
  Receive Date: 20140627
  Receipt Date: 20140627
  Transmission Date: 20141212
  Serious: No
  Sender: FDA-Public Use
  Company Number: US-ENDO PHARMACEUTICALS INC.-VALH20140006

PATIENT
  Age: 55 Year
  Sex: Female

DRUGS (3)
  1. VALSARTAN/HYDROCHLOROTHIAZIDE TABLETS 320MG/25MG [Suspect]
     Indication: HYPERTENSION
     Dosage: 320/25 MG
     Route: 048
  2. VALSARTAN/HYDROCHLOROTHIAZIDE TABLETS 320MG/25MG [Suspect]
     Indication: FLUID RETENTION
  3. VALSARTAN/HYDROCHLOROTHIAZIDE TABLETS 320MG/25MG [Suspect]
     Indication: SWELLING

REACTIONS (1)
  - Drug ineffective [Recovered/Resolved]
